FAERS Safety Report 21763240 (Version 1)
Quarter: 2022Q4

REPORT INFORMATION
  Report Type: Spontaneous
  Country: FR (occurrence: FR)
  Receive Date: 20221221
  Receipt Date: 20221221
  Transmission Date: 20230113
  Serious: Yes (Hospitalization)
  Sender: FDA-Public Use
  Company Number: None

PATIENT
  Age: 79 Year
  Sex: Female

DRUGS (5)
  1. PREDNISOLONE SODIUM METASULFOBENZOATE [Suspect]
     Active Substance: PREDNISOLONE SODIUM METAZOATE
     Indication: Rheumatoid arthritis
     Dosage: UNIT DOSE : 5 MG, FREQUENCY TIME : 1 DAYS, DURATION : 12 YEARS
     Route: 065
     Dates: start: 2010, end: 20220819
  2. ESOMEPRAZOLE MAGNESIUM [Suspect]
     Active Substance: ESOMEPRAZOLE MAGNESIUM
     Indication: Prophylaxis against gastrointestinal ulcer
     Dosage: FORM STRENGTH : 20 MG, UNIT DOSE : 20 MG, FREQUENCY TIME : 1 DAYS
     Route: 065
  3. OLUMIANT [Suspect]
     Active Substance: BARICITINIB
     Indication: Rheumatoid arthritis
     Dosage: FORM STRENGTH : 4 MG, UNIT DOSE : 4 MG, FREQUENCY TIME : 1 DAYS, DURATION : 4492 DAYS
     Route: 065
     Dates: start: 20100502, end: 20220819
  4. CALCIUM CARBONATE\CHOLECALCIFEROL [Suspect]
     Active Substance: CALCIUM CARBONATE\CHOLECALCIFEROL
     Indication: Vitamin supplementation
     Dosage: STRENGTH : 500 MG/440 IU, UNIT DOSE : 1 DOSAGE FORMS, FREQUENCY TIME : 1 DAYS
     Route: 065
  5. CANDESARTAN CILEXETIL\HYDROCHLOROTHIAZIDE [Suspect]
     Active Substance: CANDESARTAN CILEXETIL\HYDROCHLOROTHIAZIDE
     Indication: Hypertension
     Dosage: STRENGTH : 8MG/12.5MG, UNIT DOSE : 1 DOSAGE FORMS, FREQUENCY TIME : 1 DAYS
     Route: 065

REACTIONS (2)
  - Diabetic hyperosmolar coma [Recovered/Resolved]
  - Pneumonia [Recovered/Resolved]

NARRATIVE: CASE EVENT DATE: 20220819
